FAERS Safety Report 13351111 (Version 1)
Quarter: 2017Q1

REPORT INFORMATION
  Report Type: Report from Study
  Country: US (occurrence: US)
  Receive Date: 20170320
  Receipt Date: 20170320
  Transmission Date: 20170429
  Serious: Yes (Hospitalization, Other)
  Sender: FDA-Public Use
  Company Number: US-GILEAD-2017-0262640

PATIENT
  Age: 68 Year
  Sex: Male

DRUGS (1)
  1. LEDIPASVIR/SOFOSBUVIR [Suspect]
     Active Substance: LEDIPASVIR\SOFOSBUVIR
     Indication: HEPATITIS C
     Dosage: 1 DF, UNK
     Route: 048
     Dates: start: 201701

REACTIONS (4)
  - Renal function test abnormal [Unknown]
  - Hyperkalaemia [Unknown]
  - Hepatic haemorrhage [Unknown]
  - Stomatitis [Unknown]

NARRATIVE: CASE EVENT DATE: 2017
